FAERS Safety Report 7084022-0 (Version None)
Quarter: 2010Q4

REPORT INFORMATION
  Report Type: 
  Country: None (occurrence: None)
  Receive Date: 20101026
  Receipt Date: 20101019
  Transmission Date: 20110411
  Serious: Yes (Death)
  Sender: FDA-Public Use
  Company Number: 2010SP055594

PATIENT
  Sex: Male

DRUGS (1)
  1. PEG-INTRON [Suspect]
     Indication: HEPATITIS C

REACTIONS (4)
  - CARDIAC DISORDER [None]
  - HAEMODIALYSIS [None]
  - RENAL FAILURE [None]
  - TYPE 2 DIABETES MELLITUS [None]
